FAERS Safety Report 7245524-7 (Version None)
Quarter: 2011Q1

REPORT INFORMATION
  Report Type: 
  Country: None (occurrence: None)
  Receive Date: 20110118
  Receipt Date: 20110104
  Transmission Date: 20110831
  Serious: Yes (Hospitalization)
  Sender: FDA-Public Use
  Company Number: IDA-00485

PATIENT
  Age: 63 Year
  Sex: Female

DRUGS (3)
  1. LEVOTHYROXINE SODIUM [Concomitant]
  2. ATACAND HCT [Suspect]
     Indication: HYPERTENSION
     Dosage: 16/12.5 MG OD, ORAL FORMULATION: TABLET
     Route: 048
     Dates: start: 20070101
  3. (PROPRANOLOL) [Suspect]
     Indication: HYPERTENSION
     Dosage: ORAL FORMULATION: TABLET
     Route: 048
     Dates: start: 20020101

REACTIONS (6)
  - CORONARY ARTERY OCCLUSION [None]
  - NAUSEA [None]
  - DYSPNOEA [None]
  - HEADACHE [None]
  - FATIGUE [None]
  - BLOOD PRESSURE INADEQUATELY CONTROLLED [None]
